FAERS Safety Report 5590567-2 (Version None)
Quarter: 2008Q1

REPORT INFORMATION
  Report Type: 
  Country: None (occurrence: None)
  Receive Date: 20080110
  Receipt Date: 20071226
  Transmission Date: 20080703
  Serious: Yes (Other)
  Sender: FDA-Public Use
  Company Number: 012606

PATIENT
  Age: 20 Year
  Sex: Male
  Weight: 74.8 kg

DRUGS (1)
  1. CLARAVIS [Suspect]
     Indication: ACNE
     Dates: start: 20070315, end: 20070413

REACTIONS (4)
  - DELIVERY [None]
  - PREGNANCY OF PARTNER [None]
  - PREGNANCY WITH CONTRACEPTIVE DEVICE [None]
  - TRANSMISSION OF DRUG VIA SEMEN [None]
